FAERS Safety Report 15192344 (Version 10)
Quarter: 2019Q4

REPORT INFORMATION
  Report Type: Report from Study
  Country: None (occurrence: JP)
  Receive Date: 20180724
  Receipt Date: 20191231
  Transmission Date: 20200122
  Serious: Yes (Hospitalization)
  Sender: FDA-Public Use
  Company Number: JP-ABBVIE-18S-087-2427574-00

PATIENT
  Age: 73 Year
  Sex: Female
  Weight: 52 kg

DRUGS (2)
  1. DUODOPA [Suspect]
     Active Substance: CARBIDOPA\LEVODOPA
     Indication: PARKINSON^S DISEASE
     Dosage: MD: 8.5 ML CD: 1.4 ML/HR X 16 HRS
     Route: 050
     Dates: start: 201806
  2. ROPINIROLE HYDROCHLORIDE. [Concomitant]
     Active Substance: ROPINIROLE HYDROCHLORIDE
     Indication: PARKINSON^S DISEASE
     Route: 048

REACTIONS (16)
  - Hypoaesthesia [Unknown]
  - Product storage error [Unknown]
  - Mobility decreased [Unknown]
  - Miliaria [Unknown]
  - Weight decreased [Unknown]
  - Tremor [Unknown]
  - Drug ineffective [Unknown]
  - Musculoskeletal disorder [Unknown]
  - Malaise [Unknown]
  - Freezing phenomenon [Unknown]
  - Henoch-Schonlein purpura [Unknown]
  - Dyspnoea [Unknown]
  - Adverse reaction [Unknown]
  - Hospitalisation [Recovered/Resolved]
  - Product administration error [Unknown]
  - Hypophagia [Unknown]

NARRATIVE: CASE EVENT DATE: 201807
